FAERS Safety Report 8634549 (Version 2)
Quarter: 2012Q4

REPORT INFORMATION
  Report Type: 
  Country: US (occurrence: US)
  Receive Date: 20120626
  Receipt Date: 20121214
  Transmission Date: 20130627
  Serious: Yes (Hospitalization, Other)
  Sender: FDA-Public Use
  Company Number: US-GENZYME-THYM-1003292

PATIENT
  Age: 52 Year
  Sex: Female
  Weight: 64 kg

DRUGS (23)
  1. THYMOGLOBULIN [Suspect]
     Indication: PROPHYLAXIS AGAINST TRANSPLANT REJECTION
     Dosage: 125 mg, UNK
     Route: 065
     Dates: start: 20111206, end: 20111206
  2. THYMOGLOBULIN [Suspect]
     Dosage: 100 mg, UNK
     Route: 065
     Dates: start: 20111207, end: 20111207
  3. THYMOGLOBULIN [Suspect]
     Dosage: 100 mg, UNK
     Route: 065
     Dates: start: 20111208, end: 20111208
  4. THYMOGLOBULIN [Suspect]
     Dosage: 325 mg, divided over 4 days
     Route: 065
     Dates: start: 20111230
  5. AMLODIPINE [Concomitant]
     Indication: PRODUCT USED FOR UNKNOWN INDICATION
     Dosage: 10 mg, qd
     Route: 065
  6. DOXAZOSIN [Concomitant]
     Indication: PRODUCT USED FOR UNKNOWN INDICATION
     Dosage: 2 mg, qd
     Route: 065
  7. HYDRALAZINE [Concomitant]
     Indication: PRODUCT USED FOR UNKNOWN INDICATION
     Dosage: 100 mg, bid
     Route: 065
  8. METOPROLOL [Concomitant]
     Indication: PRODUCT USED FOR UNKNOWN INDICATION
     Dosage: 25 mg, bid
     Route: 065
  9. ISOSORBIDE MONONITRATE [Concomitant]
     Indication: PRODUCT USED FOR UNKNOWN INDICATION
     Dosage: 60 mg, qd
     Route: 065
  10. CALCIUM ACETATE [Concomitant]
     Indication: PRODUCT USED FOR UNKNOWN INDICATION
     Dosage: 2001 mg, tid with meals
     Route: 065
  11. TACROLIMUS [Concomitant]
     Indication: IMMUNOSUPPRESSION
     Dosage: UNK
     Route: 065
  12. TACROLIMUS [Concomitant]
     Dosage: Dose held
     Route: 065
  13. METHYLPREDNISOLONE [Concomitant]
     Indication: IMMUNOSUPPRESSION
     Dosage: 400 mg, UNK
     Route: 065
  14. METHYLPREDNISOLONE [Concomitant]
     Dosage: 200 mg, UNK
     Route: 065
  15. METHYLPREDNISOLONE [Concomitant]
     Dosage: 50 mg, UNK
     Route: 065
  16. PREDNISONE [Concomitant]
     Indication: IMMUNOSUPPRESSION
     Dosage: 20 mg, qd
     Route: 065
  17. MYCOPHENOLATE MOFETIL [Concomitant]
     Indication: IMMUNOSUPPRESSION
     Dosage: 1000 mg, bid
     Route: 065
  18. SULFAMETHOPRIM [Concomitant]
     Indication: PRODUCT USED FOR UNKNOWN INDICATION
     Dosage: 480 mg, qd
     Route: 065
  19. VALGANCICLOVIR [Concomitant]
     Indication: PRODUCT USED FOR UNKNOWN INDICATION
     Dosage: 450 mg, qd
     Route: 065
  20. CLOTRIMAZOLE [Concomitant]
     Indication: PRODUCT USED FOR UNKNOWN INDICATION
     Dosage: 10 mg, qid
     Route: 065
  21. DOCUSATE [Concomitant]
     Indication: PRODUCT USED FOR UNKNOWN INDICATION
     Dosage: 100 mg, bid
     Route: 065
  22. RANITIDINE [Concomitant]
     Indication: PRODUCT USED FOR UNKNOWN INDICATION
     Dosage: 150 mg, qd
     Route: 065
  23. CALCITRIOL [Concomitant]
     Indication: PRODUCT USED FOR UNKNOWN INDICATION
     Dosage: 0.5 mcg, qd
     Route: 065

REACTIONS (2)
  - Kidney transplant rejection [Recovered/Resolved]
  - Kidney transplant rejection [Unknown]
